FAERS Safety Report 23451903 (Version 1)
Quarter: 2024Q1

REPORT INFORMATION
  Report Type: Report from Study
  Country: US (occurrence: US)
  Receive Date: 20240129
  Receipt Date: 20240129
  Transmission Date: 20240410
  Serious: Yes (Other)
  Sender: FDA-Public Use
  Company Number: US-VA000000605-2023009419

PATIENT

DRUGS (2)
  1. SIGNIFOR [Suspect]
     Active Substance: PASIREOTIDE DIASPARTATE
     Indication: Product used for unknown indication
  2. KEVEYIS [Suspect]
     Active Substance: DICHLORPHENAMIDE
     Indication: Product used for unknown indication

REACTIONS (8)
  - Mental impairment [Unknown]
  - Aphasia [Unknown]
  - Hypophagia [Unknown]
  - Fluid intake reduced [Unknown]
  - Taste disorder [Unknown]
  - Burning sensation [Unknown]
  - Hormone level abnormal [Unknown]
  - Paraesthesia [Unknown]
